FAERS Safety Report 19261891 (Version 1)
Quarter: 2021Q2

REPORT INFORMATION
  Report Type: Spontaneous
  Country: US (occurrence: US)
  Receive Date: 20210515
  Receipt Date: 20210515
  Transmission Date: 20210717
  Serious: Yes (Hospitalization)
  Sender: FDA-Public Use
  Company Number: US-TEVA-2021-US-1910141

PATIENT
  Age: 29 Year
  Sex: Male

DRUGS (1)
  1. PALIPERIDONE. [Suspect]
     Active Substance: PALIPERIDONE
     Indication: COGNITIVE DISORDER
     Dosage: 6 MILLIGRAM DAILY; EXTENDED?RELEASE
     Route: 048

REACTIONS (1)
  - Hypothermia [Recovered/Resolved]
